FAERS Safety Report 5796792-X (Version None)
Quarter: 2008Q3

REPORT INFORMATION
  Report Type: 
  Country: None (occurrence: None)
  Receive Date: 20080701
  Receipt Date: 20080626
  Transmission Date: 20090109
  Serious: Yes (Hospitalization)
  Sender: FDA-Public Use
  Company Number: US-ASTRAZENECA-2007UW23693

PATIENT
  Age: 88 Year
  Sex: Male
  Weight: 86.8 kg

DRUGS (13)
  1. ROSUVASTATIN [Suspect]
     Indication: CARDIOVASCULAR EVENT PROPHYLAXIS
     Route: 048
     Dates: start: 20050929, end: 20071002
  2. ROSUVASTATIN [Suspect]
     Route: 048
     Dates: start: 20071009, end: 20071009
  3. MEDROL [Suspect]
     Indication: BACK PAIN
     Dosage: TAPER
     Route: 048
     Dates: start: 20070830, end: 20070903
  4. CELEBREX [Suspect]
     Indication: BACK PAIN
     Route: 048
     Dates: start: 20070904, end: 20070912
  5. NAPRELAN [Suspect]
     Indication: BACK PAIN
     Route: 048
     Dates: start: 20070913, end: 20071001
  6. FISH OIL [Concomitant]
     Indication: HYPERLIPIDAEMIA
     Route: 048
     Dates: start: 20070830
  7. PROSCAR [Concomitant]
     Indication: BENIGN PROSTATIC HYPERPLASIA
     Route: 048
     Dates: start: 20070721
  8. VITAMIN E [Concomitant]
     Indication: SUPPLEMENTATION THERAPY
     Route: 048
     Dates: start: 19850101
  9. ASCORBIC ACID [Concomitant]
     Indication: SUPPLEMENTATION THERAPY
     Route: 048
     Dates: start: 19850101
  10. SAW PALMETTO [Concomitant]
     Indication: SUPPLEMENTATION THERAPY
     Route: 048
     Dates: start: 20040101
  11. LOPRESSOR [Concomitant]
     Indication: HYPERTENSION
     Route: 048
     Dates: start: 19900101
  12. HYDROCHLOROTHIAZIDE [Concomitant]
     Indication: HYPERTENSION
     Route: 048
     Dates: start: 19950101
  13. CALCIUM + VITAMIN D [Concomitant]
     Indication: SUPPLEMENTATION THERAPY
     Route: 048
     Dates: start: 19950101

REACTIONS (1)
  - DEMYELINATING POLYNEUROPATHY [None]
